FAERS Safety Report 24927796 (Version 2)
Quarter: 2025Q1

REPORT INFORMATION
  Report Type: Spontaneous
  Country: US (occurrence: US)
  Receive Date: 20250205
  Receipt Date: 20250313
  Transmission Date: 20250409
  Serious: No
  Sender: IPSEN BIOPHARMACEUTICALS, INC.
  Company Number: US-IPSEN Group, Research and Development-2025-02460

PATIENT
  Age: 59 Year
  Sex: Female
  Weight: 64.8 kg

DRUGS (2)
  1. IQIRVO [Suspect]
     Active Substance: ELAFIBRANOR
     Indication: Primary biliary cholangitis
     Route: 048
     Dates: start: 20250106
  2. IQIRVO [Suspect]
     Active Substance: ELAFIBRANOR
     Route: 048
     Dates: start: 20241020

REACTIONS (1)
  - Product dose omission issue [Unknown]
